FAERS Safety Report 4656041-2 (Version None)
Quarter: 2005Q2

REPORT INFORMATION
  Report Type: 
  Country: None (occurrence: None)
  Receive Date: 20050505
  Receipt Date: 20050420
  Transmission Date: 20051028
  Serious: Yes (Other)
  Sender: FDA-Public Use
  Company Number: 203536

PATIENT
  Age: 63 Year
  Sex: Female
  Weight: 63 kg

DRUGS (7)
  1. HERCEPTIN [Suspect]
     Indication: BREAST CANCER
     Dosage: SEE IMAGE
     Route: 042
     Dates: start: 20030506, end: 20030506
  2. HERCEPTIN [Suspect]
     Indication: BREAST CANCER
     Dosage: SEE IMAGE
     Route: 042
     Dates: start: 20030512, end: 20031106
  3. DOXORUBICIN HCL [Suspect]
     Indication: BREAST CANCER
     Dosage: 87 MG, 1/MONTH, INTRAVENOUS
     Route: 042
     Dates: start: 20030505, end: 20030904
  4. TYLENOL #3 (CODEINE PHOSPHATE, CAFFEINE, ACETAMINOPHEN) [Concomitant]
  5. CLODRONATE (CLODRONIC ACID) [Concomitant]
  6. PRODIEM (SENNA, PSYLLUM HUSK) [Concomitant]
  7. IMOVANE (ZOPICLONE) [Concomitant]

REACTIONS (8)
  - AORTIC VALVE SCLEROSIS [None]
  - ASPARTATE AMINOTRANSFERASE INCREASED [None]
  - DYSPHASIA [None]
  - EJECTION FRACTION DECREASED [None]
  - MITRAL VALVE DISEASE [None]
  - TRANSIENT ISCHAEMIC ATTACK [None]
  - VENTRICULAR DYSFUNCTION [None]
  - VENTRICULAR DYSKINESIA [None]
